FAERS Safety Report 23124584 (Version 1)
Quarter: 2023Q4

REPORT INFORMATION
  Report Type: Report from Study
  Country: CN (occurrence: CN)
  Receive Date: 20231030
  Receipt Date: 20231030
  Transmission Date: 20240109
  Serious: Yes (Death, Hospitalization)
  Sender: FDA-Public Use
  Company Number: CN-PFIZER INC-PV202300174844

PATIENT
  Age: 50 Year
  Sex: Male
  Weight: 45 kg

DRUGS (12)
  1. PACLITAXEL [Suspect]
     Active Substance: PACLITAXEL
     Indication: Non-small cell lung cancer metastatic
     Dosage: 200 MG/M2, DAY1 (D1) EVERY 3 WEEKS FOR 4 CYCLES
     Route: 042
     Dates: start: 20180605, end: 20180605
  2. PACLITAXEL [Suspect]
     Active Substance: PACLITAXEL
     Dosage: 200 MG/M2, DAY 1 (D1) EVERY 3 WEEKS FOR 4 CYCLES
     Route: 042
     Dates: start: 20180703, end: 20180703
  3. CARBOPLATIN [Suspect]
     Active Substance: CARBOPLATIN
     Indication: Non-small cell lung cancer metastatic
     Dosage: AREA UNDER THE CURVE (AUC) 6, DAY 1 (D1) EVERY 3 WEEKS FOR 4 CYCLES
     Route: 042
     Dates: start: 20180605, end: 20180605
  4. CARBOPLATIN [Suspect]
     Active Substance: CARBOPLATIN
     Dosage: AREA UNDER THE CURVE (AUC) 6, DAY 1 (D1) EVERY 3 WEEKS FOR 4 CYCLES
     Route: 042
     Dates: start: 20180703, end: 20180703
  5. INVESTIGATIONAL PRODUCT [Suspect]
     Active Substance: INVESTIGATIONAL PRODUCT
     Indication: Non-small cell lung cancer metastatic
     Dosage: EVERY 3 WEEKS
     Route: 042
     Dates: start: 20180605, end: 20180605
  6. INVESTIGATIONAL PRODUCT [Suspect]
     Active Substance: INVESTIGATIONAL PRODUCT
     Dosage: EVERY 3 WEEKS
     Route: 042
     Dates: start: 20180703, end: 20180703
  7. DEXAMETHASONE [Concomitant]
     Active Substance: DEXAMETHASONE
     Dosage: 15000 UG
     Dates: start: 20180604, end: 20180605
  8. PALONOSETRON [Concomitant]
     Active Substance: PALONOSETRON
     Dosage: 0.25 MG
     Dates: start: 20180605, end: 20180606
  9. ESOMEPRAZOLE SODIUM [Concomitant]
     Active Substance: ESOMEPRAZOLE SODIUM
     Dosage: 40 MG
     Dates: start: 20180605, end: 20180606
  10. DEXAMETHASONE SODIUM PHOSPHATE [Concomitant]
     Active Substance: DEXAMETHASONE SODIUM PHOSPHATE
     Dosage: 5 MG
     Dates: start: 20180605, end: 20180605
  11. FUROSEMIDE SODIUM [Concomitant]
     Active Substance: FUROSEMIDE SODIUM
     Dosage: 20 MG
     Dates: start: 20180606, end: 20180606
  12. LORATADINE [Concomitant]
     Active Substance: LORATADINE
     Dosage: 10 MG
     Dates: start: 20180605, end: 20180605

REACTIONS (3)
  - Gastritis [Recovered/Resolved]
  - Superior vena cava syndrome [Recovered/Resolved]
  - Neoplasm progression [Fatal]

NARRATIVE: CASE EVENT DATE: 20180616
